FAERS Safety Report 15765109 (Version 1)
Quarter: 2018Q4

REPORT INFORMATION
  Report Type: Spontaneous
  Country: US (occurrence: US)
  Receive Date: 20181227
  Receipt Date: 20181227
  Transmission Date: 20190205
  Serious: Yes (Life-Threatening, Hospitalization, Other)
  Sender: FDA-Public Use
  Company Number: None

PATIENT
  Age: 30 Year
  Sex: Female
  Weight: 89 kg

DRUGS (1)
  1. CEFTRIAXONE. [Suspect]
     Active Substance: CEFTRIAXONE
     Indication: PNEUMONIA
     Dosage: ?          OTHER FREQUENCY:ONCE;?
     Route: 040
     Dates: start: 20181225, end: 20181225

REACTIONS (7)
  - Drooling [None]
  - Anaphylactic reaction [None]
  - Unresponsive to stimuli [None]
  - Dyspnoea [None]
  - Cardiac arrest [None]
  - Bradycardia [None]
  - Respiratory arrest [None]

NARRATIVE: CASE EVENT DATE: 20181225
